FAERS Safety Report 22290523 (Version 2)
Quarter: 2023Q2

REPORT INFORMATION
  Report Type: Spontaneous
  Country: US (occurrence: US)
  Receive Date: 20230505
  Receipt Date: 20230529
  Transmission Date: 20230721
  Serious: No
  Sender: FDA-Public Use
  Company Number: US-GALDERMA-US2023005880

PATIENT

DRUGS (7)
  1. PROACTIV MD ADAPALENE ACNE TREATMENT [Suspect]
     Active Substance: ADAPALENE
     Indication: Skin hyperpigmentation
     Dosage: 1 DOSAGE FORM, QD
     Route: 061
     Dates: start: 20230403, end: 20230406
  2. Proactiv MD Ultra Gentle Cleanser [Concomitant]
     Indication: Skin hyperpigmentation
     Dosage: 1 DOSAGE FORM, QD
     Route: 061
     Dates: start: 20230403, end: 20230406
  3. Proactiv MD Ultra Hydrating Moisturizer [Concomitant]
     Indication: Skin hyperpigmentation
     Dosage: 1 DOSAGE FORM, QD
     Route: 061
     Dates: start: 20230403, end: 20230406
  4. Proactiv Post Acne Dark Mark Relief [Concomitant]
     Indication: Skin hyperpigmentation
     Dosage: 1 DOSAGE FORM, QD
     Route: 061
     Dates: start: 20230403, end: 20230406
  5. Proactiv Post Acne Scar Gel [Concomitant]
     Indication: Skin hyperpigmentation
     Dosage: 1 DOSAGE FORM, QD
     Route: 061
     Dates: start: 20230403, end: 20230406
  6. ASCORBIC ACID\BIOFLAVONOIDS [Concomitant]
     Active Substance: ASCORBIC ACID\BIOFLAVONOIDS
     Indication: Product used for unknown indication
     Route: 065
  7. LO LOESTRIN FE [Concomitant]
     Active Substance: ETHINYL ESTRADIOL\NORETHINDRONE ACETATE
     Indication: Contraception
     Route: 065

REACTIONS (7)
  - Rash [Recovering/Resolving]
  - Rash erythematous [Recovering/Resolving]
  - Skin exfoliation [Recovering/Resolving]
  - Acne [Recovering/Resolving]
  - Dry skin [Recovering/Resolving]
  - Drug ineffective for unapproved indication [Recovered/Resolved]
  - Product use in unapproved indication [Recovered/Resolved]

NARRATIVE: CASE EVENT DATE: 20230403
